FAERS Safety Report 5800003-6 (Version None)
Quarter: 2008Q3

REPORT INFORMATION
  Report Type: 
  Country: None (occurrence: None)
  Receive Date: 20080703
  Receipt Date: 20080625
  Transmission Date: 20090109
  Serious: Yes (Life-Threatening, Hospitalization)
  Sender: FDA-Public Use
  Company Number: US-AMGEN-QUU290203

PATIENT
  Sex: Female

DRUGS (2)
  1. ENBREL [Suspect]
     Indication: RHEUMATOID ARTHRITIS
     Route: 058
     Dates: start: 20071201
  2. METHOTREXATE [Concomitant]
     Route: 048

REACTIONS (2)
  - HEPATIC FAILURE [None]
  - HEPATITIS B SURFACE ANTIGEN POSITIVE [None]
